FAERS Safety Report 11794639 (Version 3)
Quarter: 2017Q2

REPORT INFORMATION
  Report Type: Spontaneous
  Country: US (occurrence: US)
  Receive Date: 20151202
  Receipt Date: 20170413
  Transmission Date: 20170829
  Serious: Yes (Other)
  Sender: FDA-Public Use
  Company Number: US-AMGEN-USASP2015125248

PATIENT
  Age: 59 Year
  Sex: Female

DRUGS (1)
  1. PROLIA [Suspect]
     Active Substance: DENOSUMAB
     Indication: OSTEOPOROSIS POSTMENOPAUSAL
     Dosage: UNK
     Route: 065
     Dates: start: 201511

REACTIONS (18)
  - Sepsis [Unknown]
  - Chills [Unknown]
  - Insomnia [Unknown]
  - Hypoaesthesia [Unknown]
  - Peripheral swelling [Not Recovered/Not Resolved]
  - Fluid overload [Unknown]
  - Muscle spasms [Unknown]
  - Diarrhoea [Unknown]
  - Skin disorder [Unknown]
  - Dysphagia [Unknown]
  - Fatigue [Unknown]
  - Compression fracture [Unknown]
  - Pain [Unknown]
  - Erythema [Unknown]
  - Fluid retention [Unknown]
  - Blood calcium decreased [Unknown]
  - Ileostomy [Unknown]
  - Pneumonia [Unknown]

NARRATIVE: CASE EVENT DATE: 2015
